FAERS Safety Report 20481188 (Version 3)
Quarter: 2025Q3

REPORT INFORMATION
  Report Type: Spontaneous
  Country: EU (occurrence: EU)
  Receive Date: 20220216
  Receipt Date: 20250929
  Transmission Date: 20251021
  Serious: Yes (Hospitalization, Other)
  Sender: BIOGEN
  Company Number: EU-TEVA-2021-AT-1984222

PATIENT
  Age: 31 Year
  Sex: Female

DRUGS (7)
  1. TYSABRI [Suspect]
     Active Substance: NATALIZUMAB
     Indication: Multiple sclerosis
     Route: 050
     Dates: start: 201910
  2. COPAXONE [Suspect]
     Active Substance: GLATIRAMER ACETATE
     Indication: Multiple sclerosis
     Dosage: 40MG/ML
     Route: 050
     Dates: start: 20200518
  3. VELNATAL PLUS [Concomitant]
     Indication: Nutritional supplementation
     Route: 050
     Dates: start: 202004, end: 202109
  4. Nerisona salbe 0 .1% [Concomitant]
     Indication: Eczema
     Dosage: IN THE MORNING
     Route: 050
     Dates: start: 20200701, end: 202008
  5. Magnonorm Genericon [Concomitant]
     Indication: Mineral supplementation
     Dosage: 365 MILLIGRAM DAILY;
     Route: 050
     Dates: start: 202004, end: 202006
  6. Maxi-Kalz [Concomitant]
     Indication: Mineral supplementation
     Dosage: 500 MILLIGRAM DAILY;
     Route: 050
     Dates: start: 202004, end: 202112
  7. MAGNESIUM [Concomitant]
     Active Substance: MAGNESIUM
     Indication: Mineral supplementation
     Route: 050
     Dates: start: 202006, end: 202109

REACTIONS (9)
  - Multiple sclerosis relapse [Unknown]
  - Flushing [Recovered/Resolved]
  - Maternal exposure during pregnancy [Unknown]
  - Live birth [Unknown]
  - Mood swings [Unknown]
  - Hypertension [Unknown]
  - Heart rate increased [Recovered/Resolved]
  - Anger [Unknown]
  - Dyspnoea [Recovered/Resolved]

NARRATIVE: CASE EVENT DATE: 20200518
